FAERS Safety Report 11889748 (Version 4)
Quarter: 2017Q1

REPORT INFORMATION
  Report Type: Report from Study
  Country: FR (occurrence: FR)
  Receive Date: 20160105
  Receipt Date: 20170216
  Transmission Date: 20170428
  Serious: Yes (Life-Threatening, Hospitalization)
  Sender: FDA-Public Use
  Company Number: FR-ARIAD PHARMACEUTICALS, INC-2015FR005930

PATIENT
  Age: 49 Year
  Sex: Male
  Weight: 78 kg

DRUGS (2)
  1. CYTARABINE. [Concomitant]
     Active Substance: CYTARABINE
     Indication: ACUTE MYELOID LEUKAEMIA
     Dosage: 5760 MG, SINGLE
     Route: 042
     Dates: start: 20151204, end: 20151206
  2. PONATINIB [Suspect]
     Active Substance: PONATINIB
     Indication: ACUTE MYELOID LEUKAEMIA
     Dosage: 45 MG, UNK
     Route: 048
     Dates: start: 20151027, end: 20151210

REACTIONS (1)
  - Angina pectoris [Recovered/Resolved with Sequelae]

NARRATIVE: CASE EVENT DATE: 20151215
